FAERS Safety Report 5507993-X (Version None)
Quarter: 2007Q4

REPORT INFORMATION
  Report Type: 
  Country: None (occurrence: None)
  Receive Date: 20071106
  Receipt Date: 20071026
  Transmission Date: 20080405
  Serious: Yes (Other)
  Sender: FDA-Public Use
  Company Number: CA-AMGEN-QUU246659

PATIENT
  Sex: Male

DRUGS (1)
  1. ENBREL [Suspect]
     Indication: PSORIASIS
     Route: 058
     Dates: start: 20031201

REACTIONS (3)
  - AORTIC VALVE INCOMPETENCE [None]
  - CARDIAC FAILURE CONGESTIVE [None]
  - GOUT [None]
